FAERS Safety Report 8945351 (Version 3)
Quarter: 2013Q1

REPORT INFORMATION
  Report Type: Spontaneous
  Country: US (occurrence: US)
  Receive Date: 20121205
  Receipt Date: 20130215
  Transmission Date: 20140127
  Serious: Yes (Other)
  Sender: FDA-Public Use
  Company Number: US-PFIZER INC-2012300660

PATIENT
  Age: 53 Year
  Sex: Female
  Weight: 45.35 kg

DRUGS (4)
  1. CHANTIX [Suspect]
     Indication: SMOKING CESSATION THERAPY
     Dosage: UNK
     Dates: start: 2010
  2. CITALOPRAM [Concomitant]
     Dosage: 20 MG,DAILY (ONE EVERY MORNING)
  3. MIRTAZAPINE [Concomitant]
     Dosage: 30 MG,DAILY (ONE AT BED TIME)
  4. CLONAZEPAM [Concomitant]
     Dosage: 0.5 MG, 2X/DAY

REACTIONS (3)
  - Pneumonia [Unknown]
  - Chronic obstructive pulmonary disease [Not Recovered/Not Resolved]
  - Bronchitis chronic [Unknown]
